FAERS Safety Report 17194685 (Version 1)
Quarter: 2019Q4

REPORT INFORMATION
  Report Type: Spontaneous
  Country: US (occurrence: US)
  Receive Date: 20191202
  Receipt Date: 20191202
  Transmission Date: 20200122
  Serious: No
  Sender: FDA-Public Use
  Company Number: None

PATIENT
  Age: 41 Year
  Sex: Female

DRUGS (1)
  1. MYCOPHENOLATE MOFETIL 500MG TABLET [Suspect]
     Active Substance: MYCOPHENOLATE MOFETIL
     Route: 048
     Dates: start: 201706

REACTIONS (7)
  - Brain injury [None]
  - Muscular weakness [None]
  - Cognitive disorder [None]
  - Balance disorder [None]
  - Seizure [None]
  - Product substitution issue [None]
  - Speech disorder [None]

NARRATIVE: CASE EVENT DATE: 20190101
